FAERS Safety Report 8864347 (Version 1)
Quarter: 2012Q4

REPORT INFORMATION
  Report Type: 
  Country: US (occurrence: US)
  Receive Date: 20121024
  Receipt Date: 20121024
  Transmission Date: 20130627
  Serious: No
  Sender: FDA-Public Use
  Company Number: US-AMGEN-USASP2011066999

PATIENT
  Age: 53 Year
  Sex: Female
  Weight: 78.01 kg

DRUGS (8)
  1. ENBREL [Suspect]
     Indication: PRODUCT USED FOR UNKNOWN INDICATION
     Dosage: 25 mg, 2 times/wk
     Route: 058
  2. NEUPOGEN [Concomitant]
     Dosage: 300 mug, UNK
  3. GIANVI [Concomitant]
     Dosage: UNK mg, UNK
     Route: 048
  4. VITAMIN D /00107901/ [Concomitant]
     Dosage: 400 IU, UNK
     Route: 048
  5. PEPCID AC [Concomitant]
     Dosage: 10 mg, UNK
     Route: 048
  6. CHROMIUM [Concomitant]
     Dosage: 1 mg, UNK
     Route: 048
  7. FLAXSEED OIL [Concomitant]
  8. HYDROCHLOROTHIAZIDE WITH TRIAMTERENE [Concomitant]
     Route: 048

REACTIONS (1)
  - Nasopharyngitis [Unknown]
